FAERS Safety Report 6388027-4 (Version None)
Quarter: 2009Q3

REPORT INFORMATION
  Report Type: 
  Country: None (occurrence: None)
  Receive Date: 20090930
  Receipt Date: 20090921
  Transmission Date: 20100115
  Serious: Yes (Other)
  Sender: FDA-Public Use
  Company Number: ALDI-FR-2009-0024

PATIENT

DRUGS (1)
  1. METHYLDOPA [Suspect]
     Indication: HYPERTENSION

REACTIONS (2)
  - DRUG EXPOSURE DURING PREGNANCY [None]
  - RENAL FAILURE ACUTE [None]
